FAERS Safety Report 6723384-8 (Version None)
Quarter: 2010Q2

REPORT INFORMATION
  Report Type: 
  Country: None (occurrence: None)
  Receive Date: 20100513
  Receipt Date: 20100421
  Transmission Date: 20101027
  Serious: No
  Sender: FDA-Public Use
  Company Number: US-ABBOTT-10P-163-0640902-00

PATIENT
  Sex: Male
  Weight: 72.64 kg

DRUGS (2)
  1. GENGRAF [Suspect]
     Indication: PSORIASIS
     Dates: start: 20100101
  2. GENGRAF [Suspect]

REACTIONS (3)
  - MIGRAINE [None]
  - PAIN [None]
  - PARAESTHESIA [None]
